FAERS Safety Report 7112910-5 (Version None)
Quarter: 2010Q4

REPORT INFORMATION
  Report Type: 
  Country: None (occurrence: None)
  Receive Date: 20101119
  Receipt Date: 20100603
  Transmission Date: 20110411
  Serious: No
  Sender: FDA-Public Use
  Company Number: US-BRISTOL-MYERS SQUIBB COMPANY-15135791

PATIENT
  Sex: Female

DRUGS (2)
  1. AVALIDE [Suspect]
  2. ADVIL [Concomitant]

REACTIONS (2)
  - DIZZINESS [None]
  - NAUSEA [None]
